FAERS Safety Report 9641542 (Version 4)
Quarter: 2014Q3

REPORT INFORMATION
  Report Type: Report from Study
  Country: US (occurrence: US)
  Receive Date: 20131023
  Receipt Date: 20140701
  Transmission Date: 20150326
  Serious: Yes (Other)
  Sender: FDA-Public Use
  Company Number: US-ALEXION-A201302669

PATIENT

DRUGS (3)
  1. SOLIRIS [Suspect]
     Active Substance: ECULIZUMAB
     Dosage: 900 MG, Q2W
     Route: 042
     Dates: start: 201402
  2. SOLIRIS [Suspect]
     Active Substance: ECULIZUMAB
     Indication: PAROXYSMAL NOCTURNAL HAEMOGLOBINURIA
     Dosage: 900 MG, Q2W
     Route: 042
     Dates: start: 20130718
  3. FOLIC ACID. [Concomitant]
     Active Substance: FOLIC ACID
     Indication: PARKINSON^S DISEASE
     Dosage: 2 MG, QD
     Route: 065
     Dates: start: 20130801

REACTIONS (6)
  - Fall [Unknown]
  - Contusion [Unknown]
  - Hypertension [Unknown]
  - Dyspnoea [Recovering/Resolving]
  - Diabetes mellitus [Unknown]
  - Haemoglobin decreased [Unknown]

NARRATIVE: CASE EVENT DATE: 20130801
